FAERS Safety Report 20597807 (Version 1)
Quarter: 2022Q1

REPORT INFORMATION
  Report Type: Spontaneous
  Country: BR (occurrence: BR)
  Receive Date: 20220315
  Receipt Date: 20220315
  Transmission Date: 20220423
  Serious: Yes (Other)
  Sender: FDA-Public Use
  Company Number: BR-PFIZER INC-202200387711

PATIENT
  Age: 82 Year
  Sex: Female
  Weight: 76 kg

DRUGS (1)
  1. XALATAN [Suspect]
     Active Substance: LATANOPROST
     Indication: Glaucoma
     Dosage: UNK
     Dates: start: 2002

REACTIONS (7)
  - Cataract [Unknown]
  - Glaucoma [Unknown]
  - Blindness unilateral [Unknown]
  - Memory impairment [Unknown]
  - Hypoacusis [Unknown]
  - Visual impairment [Unknown]
  - Hypertension [Unknown]
